FAERS Safety Report 8928843 (Version 1)
Quarter: 2012Q4

REPORT INFORMATION
  Report Type: 
  Country: BR (occurrence: BR)
  Receive Date: 20121127
  Receipt Date: 20121127
  Transmission Date: 20130627
  Serious: Yes (Hospitalization)
  Sender: FDA-Public Use
  Company Number: BR-PFIZER INC-2012295913

PATIENT
  Age: 83 Year
  Sex: Female
  Weight: 61 kg

DRUGS (2)
  1. CITALOR [Suspect]
     Dosage: 10 mg, UNK
     Dates: start: 2002
  2. NAPRIX [Concomitant]
     Dosage: UNK

REACTIONS (2)
  - Herpes virus infection [Unknown]
  - Memory impairment [Unknown]
